FAERS Safety Report 17721607 (Version 2)
Quarter: 2020Q2

REPORT INFORMATION
  Report Type: Report from Study
  Country: MX (occurrence: MX)
  Receive Date: 20200429
  Receipt Date: 20200521
  Transmission Date: 20200714
  Serious: Yes (Hospitalization, Other)
  Sender: FDA-Public Use
  Company Number: MX-ROCHE-2573930

PATIENT

DRUGS (1)
  1. MABTHERA [Suspect]
     Active Substance: RITUXIMAB
     Indication: CHRONIC LYMPHOCYTIC LEUKAEMIA
     Route: 065
     Dates: start: 20191121

REACTIONS (5)
  - Haemophagocytic lymphohistiocytosis [Unknown]
  - Decreased immune responsiveness [Unknown]
  - Bone marrow disorder [Unknown]
  - Pyelonephritis [Not Recovered/Not Resolved]
  - Urinary tract infection [Unknown]
